FAERS Safety Report 9159760 (Version 3)
Quarter: 2015Q3

REPORT INFORMATION
  Report Type: Spontaneous
  Country: US (occurrence: None)
  Receive Date: 20130220
  Receipt Date: 20150730
  Transmission Date: 20151125
  Serious: Yes (Hospitalization, Other)
  Sender: FDA-Public Use
  Company Number: DSU-2013-01322

PATIENT
  Age: 59 Year
  Sex: Female
  Weight: 47.6 kg

DRUGS (15)
  1. BENICAR HCT [Suspect]
     Active Substance: HYDROCHLOROTHIAZIDE\OLMESARTAN MEDOXOMIL
     Indication: HYPERTENSION
     Dosage: 40/12.5 MG
     Dates: start: 20080707, end: 20111003
  2. KLONOPIN [Concomitant]
     Active Substance: CLONAZEPAM
  3. BENICAR [Suspect]
     Active Substance: OLMESARTAN MEDOXOMIL
     Indication: HYPERTENSION
     Route: 048
     Dates: start: 20051018, end: 201109
  4. BUDESONIDE (BUDESONIDE) [Concomitant]
     Active Substance: BUDESONIDE
  5. LANSOPRAZOLE (LANSOPRAZOLE) [Concomitant]
     Active Substance: LANSOPRAZOLE
  6. SYNTHROID [Concomitant]
     Active Substance: LEVOTHYROXINE SODIUM
  7. PREDNISOLONE (PREDNISOLONE SODIUM PHOSPHATE) [Concomitant]
     Active Substance: PREDNISOLONE
  8. ATIVAN [Concomitant]
     Active Substance: LORAZEPAM
  9. ZOLOFT [Concomitant]
     Active Substance: SERTRALINE HYDROCHLORIDE
  10. LACTOBACILLUS ACID (LACTOBACILLUS ACIDOPHILUS) [Concomitant]
  11. LEVOTHYROXINE (LEVOTHYROXINE) [Concomitant]
     Active Substance: LEVOTHYROXINE
  12. CLONAZEPAM (CLONAZEPAM) [Concomitant]
     Active Substance: CLONAZEPAM
  13. DIPHENOXYLATE/ATROPINE (ATROPINE SULFATE, DIPHENOXYLATE HYDROCHLORIDE) [Concomitant]
  14. CALCIUM CARBONATE W/VITAMIN D (CALCIUM CARBONATE, COLECALCIFEROL) [Concomitant]
  15. SERTRALINE HCL (SERTRALINE HYDROCHLORIDE) [Concomitant]

REACTIONS (14)
  - Wrong technique in product usage process [None]
  - Alanine aminotransferase increased [None]
  - Anxiety [None]
  - Iritis [None]
  - Palpitations [None]
  - Malabsorption [None]
  - Blood pressure decreased [None]
  - Dysthymic disorder [None]
  - Drug administration error [None]
  - Aspartate aminotransferase increased [None]
  - Haemorrhoids [None]
  - Hepatic steatosis [None]
  - Hiatus hernia [None]
  - Depression [None]

NARRATIVE: CASE EVENT DATE: 2011
